FAERS Safety Report 4717321-5 (Version None)
Quarter: 2005Q3

REPORT INFORMATION
  Report Type: 
  Country: None (occurrence: None)
  Receive Date: 20050715
  Receipt Date: 20050705
  Transmission Date: 20060218
  Serious: Yes (Other)
  Sender: FDA-Public Use
  Company Number: 2005073842

PATIENT
  Sex: Female

DRUGS (1)
  1. FLAGYL [Suspect]
     Indication: INFECTION
     Dosage: ORAL
     Route: 048
     Dates: start: 19660101, end: 19660101

REACTIONS (8)
  - ANAPHYLACTIC SHOCK [None]
  - BODY HEIGHT DECREASED [None]
  - HYPERTENSION [None]
  - HYPOTENSION [None]
  - LOSS OF CONSCIOUSNESS [None]
  - MYOCARDIAL INFARCTION [None]
  - THYROID FUNCTION TEST ABNORMAL [None]
  - TRANSMISSION OF DRUG VIA SEMEN [None]
